FAERS Safety Report 15533472 (Version 1)
Quarter: 2018Q4

REPORT INFORMATION
  Report Type: Spontaneous
  Country: DE (occurrence: DE)
  Receive Date: 20181019
  Receipt Date: 20181019
  Transmission Date: 20190205
  Serious: Yes (Hospitalization, Other)
  Sender: FDA-Public Use
  Company Number: DE-PFIZER INC-2018420561

PATIENT
  Age: 40 Year
  Sex: Male

DRUGS (6)
  1. CYCLOPHOSPHAMIDE. [Suspect]
     Active Substance: CYCLOPHOSPHAMIDE
     Dosage: 14.5 MG/KG, CYCLIC (D-6, -5), ACCORDING TO BALTIMORE SCHEME
     Dates: start: 20180220
  2. FLUDARABINE [Suspect]
     Active Substance: FLUDARABINE PHOSPHATE
     Dosage: 30 MG/M2, CYCLIC (D-6 BIS -2), CONDITIONING
     Dates: start: 20180220
  3. CYCLOPHOSPHAMIDE. [Suspect]
     Active Substance: CYCLOPHOSPHAMIDE
     Dosage: 50 MG/KG, CYCLIC (D+3, +4 (POST-TX CY))
  4. TREOSULFAN [Suspect]
     Active Substance: TREOSULFAN
     Dosage: 12000 MG/M2, CYCLIC (D-4 TO -2), CONDITIONING
     Dates: start: 20180220
  5. INOTUZUMAB OZOGAMICIN [Suspect]
     Active Substance: INOTUZUMAB OZOGAMICIN
     Indication: ACUTE LYMPHOCYTIC LEUKAEMIA RECURRENT
     Dosage: 2 DF, UNK
     Dates: start: 201712
  6. PREDNISOLONE. [Suspect]
     Active Substance: PREDNISOLONE
     Indication: PROPHYLAXIS
     Dosage: 2 MG/KG, DECREASING
     Dates: start: 201802

REACTIONS (10)
  - Gastrointestinal disorder [Unknown]
  - Acute graft versus host disease [Unknown]
  - Pulmonary sepsis [Unknown]
  - Diarrhoea [Unknown]
  - Enterocolitis [Unknown]
  - Colitis ulcerative [Unknown]
  - Systemic inflammatory response syndrome [Unknown]
  - Renal failure [Unknown]
  - Restrictive pulmonary disease [Unknown]
  - Diarrhoea haemorrhagic [Unknown]

NARRATIVE: CASE EVENT DATE: 201801
